FAERS Safety Report 22063792 (Version 1)
Quarter: 2023Q1

REPORT INFORMATION
  Report Type: Spontaneous
  Country: FR (occurrence: FR)
  Receive Date: 20230306
  Receipt Date: 20230306
  Transmission Date: 20230418
  Serious: Yes (Other)
  Sender: FDA-Public Use
  Company Number: FR-AFSSAPS-TS2023000191

PATIENT
  Age: 76 Year
  Sex: Male

DRUGS (6)
  1. HYDROCHLOROTHIAZIDE [Suspect]
     Active Substance: HYDROCHLOROTHIAZIDE
     Indication: Hypertension
     Dosage: 6.25 MILLIGRAM, ONCE A DAY
     Route: 048
     Dates: end: 20221224
  2. OXAZEPAM [Suspect]
     Active Substance: OXAZEPAM
     Indication: Alcohol detoxification
     Dosage: 10 MILLIGRAM, ONCE A DAY
     Route: 048
     Dates: start: 20221207, end: 20221222
  3. ACAMPROSATE CALCIUM [Suspect]
     Active Substance: ACAMPROSATE CALCIUM
     Indication: Alcohol detoxification
     Dosage: 5 DOSAGE FORM, ONCE A DAY
     Route: 048
     Dates: start: 20221130, end: 20221221
  4. NIACINAMIDE [Suspect]
     Active Substance: NIACINAMIDE
     Indication: Vitamin supplementation
     Dosage: 3 DOSAGE FORM, ONCE A DAY
     Route: 048
     Dates: start: 20221130, end: 20221221
  5. CYANOCOBALAMIN\PYRIDOXINE HYDROCHLORIDE\THIAMINE [Suspect]
     Active Substance: CYANOCOBALAMIN\PYRIDOXINE HYDROCHLORIDE\THIAMINE
     Indication: Vitamin supplementation
     Dosage: 2 DOSAGE FORM, ONCE A DAY
     Route: 048
     Dates: start: 20221205, end: 20221221
  6. IOMERON [Suspect]
     Active Substance: IOMEPROL
     Indication: Magnetic resonance imaging
     Dosage: UNK (1 TOTAL)
     Route: 042
     Dates: start: 20221213, end: 20221213

REACTIONS (2)
  - Dermatitis atopic [Recovered/Resolved]
  - Face oedema [Recovered/Resolved]

NARRATIVE: CASE EVENT DATE: 20221219
